FAERS Safety Report 6595853-5 (Version None)
Quarter: 2010Q1

REPORT INFORMATION
  Report Type: 
  Country: None (occurrence: None)
  Receive Date: 20100216
  Receipt Date: 20070108
  Transmission Date: 20100710
  Serious: Yes (Death, Other)
  Sender: FDA-Public Use
  Company Number: 2009-3726

PATIENT
  Sex: Male

DRUGS (1)
  1. APOKYN [Suspect]
     Indication: PARKINSON'S DISEASE
     Dosage: 0.6 ML (0.2 ML, 3 IN 1 D), SUBCUTANEOUS
     Route: 058
     Dates: start: 20060920

REACTIONS (2)
  - HAEMORRHAGE [None]
  - MUCOUS MEMBRANE DISORDER [None]
